FAERS Safety Report 19443280 (Version 1)
Quarter: 2021Q2

REPORT INFORMATION
  Report Type: Spontaneous
  Country: US (occurrence: US)
  Receive Date: 20210621
  Receipt Date: 20210621
  Transmission Date: 20210717
  Serious: No
  Sender: FDA-Public Use
  Company Number: US-BAYER-2021-159579

PATIENT
  Sex: Female

DRUGS (1)
  1. MENOSTAR [Suspect]
     Active Substance: ESTRADIOL
     Indication: MENOPAUSAL SYMPTOMS
     Dosage: UNK
     Route: 062
     Dates: start: 2001

REACTIONS (4)
  - Drug withdrawal syndrome [Not Recovered/Not Resolved]
  - Wrong technique in device usage process [None]
  - Incorrect dose administered [None]
  - Product prescribing issue [None]
